FAERS Safety Report 14477525 (Version 1)
Quarter: 2018Q1

REPORT INFORMATION
  Report Type: Report from Study
  Country: US (occurrence: US)
  Receive Date: 20180201
  Receipt Date: 20180201
  Transmission Date: 20180509
  Serious: No
  Sender: FDA-Public Use
  Company Number: US-EXELIXIS-CABO-17010934

PATIENT
  Age: 54 Year
  Sex: Male

DRUGS (18)
  1. DIPHENOXYLATE [Concomitant]
     Active Substance: DIPHENOXYLATE
  2. CABOMETYX [Suspect]
     Active Substance: CABOZANTINIB S-MALATE
     Dosage: 60 MG, QD
     Route: 048
     Dates: start: 2017
  3. CALCIUM CARBONATE. [Concomitant]
     Active Substance: CALCIUM CARBONATE
  4. HYDROCORTISONE. [Concomitant]
     Active Substance: HYDROCORTISONE
  5. LEVOTHYROXINE. [Concomitant]
     Active Substance: LEVOTHYROXINE
  6. ZOLEDRONIC ACID [Concomitant]
     Active Substance: ZOLEDRONIC ACID
  7. CABOMETYX [Suspect]
     Active Substance: CABOZANTINIB S-MALATE
     Indication: RENAL CANCER
     Dosage: 40 MG, QD
     Route: 048
     Dates: start: 20170713, end: 2017
  8. FLUDROCORTISON ACETATE [Concomitant]
  9. PAZOPANIB [Concomitant]
     Active Substance: PAZOPANIB
  10. METHYLPHENIDATE. [Concomitant]
     Active Substance: METHYLPHENIDATE
  11. CYANOCOBALAMIN. [Concomitant]
     Active Substance: CYANOCOBALAMIN
  12. NIFEDIPINE. [Concomitant]
     Active Substance: NIFEDIPINE
  13. OXYCODONE [Concomitant]
     Active Substance: OXYCODONE
  14. LISINOPRIL. [Concomitant]
     Active Substance: LISINOPRIL
  15. TESTIM [Concomitant]
     Active Substance: TESTOSTERONE
  16. SODIUM CHLORIDE. [Concomitant]
     Active Substance: SODIUM CHLORIDE
  17. DEXAMETHASONE. [Concomitant]
     Active Substance: DEXAMETHASONE
  18. TEMAZEPAM. [Concomitant]
     Active Substance: TEMAZEPAM

REACTIONS (4)
  - Rash [Unknown]
  - Amnesia [Unknown]
  - Scrotal erythema [Unknown]
  - Acne [Unknown]

NARRATIVE: CASE EVENT DATE: 20171017
